FAERS Safety Report 10979317 (Version 3)
Quarter: 2015Q3

REPORT INFORMATION
  Report Type: Spontaneous
  Country: DE (occurrence: DE)
  Receive Date: 20150402
  Receipt Date: 20150716
  Transmission Date: 20151125
  Serious: Yes (Hospitalization, Disabling, Other)
  Sender: FDA-Public Use
  Company Number: DE-PFIZER INC-2015112116

PATIENT
  Age: 9 Year
  Sex: Male

DRUGS (12)
  1. PHENYTOIN. [Suspect]
     Active Substance: PHENYTOIN
     Indication: GENERALISED TONIC-CLONIC SEIZURE
     Dosage: 300 MG, DAILY
  2. PHENYTOIN. [Suspect]
     Active Substance: PHENYTOIN
     Indication: PETIT MAL EPILEPSY
     Dosage: 300-500 MG/DAY
  3. ETHOSUXIMIDE. [Concomitant]
     Active Substance: ETHOSUXIMIDE
     Indication: EPILEPSY
  4. BARBEXACLONUM [Concomitant]
     Indication: EPILEPSY
  5. BARBEXACLONUM [Concomitant]
     Indication: GENERALISED TONIC-CLONIC SEIZURE
  6. ETHOSUXIMIDE. [Concomitant]
     Active Substance: ETHOSUXIMIDE
     Indication: PETIT MAL EPILEPSY
  7. PHENYTOIN. [Suspect]
     Active Substance: PHENYTOIN
     Indication: EPILEPSY
     Dosage: 300 MG, DAILY
     Dates: start: 1957
  8. PRIMIDONE. [Concomitant]
     Active Substance: PRIMIDONE
     Indication: EPILEPSY
     Dosage: UNK
  9. ETHOSUXIMIDE. [Concomitant]
     Active Substance: ETHOSUXIMIDE
     Indication: GENERALISED TONIC-CLONIC SEIZURE
  10. PRIMIDONE. [Concomitant]
     Active Substance: PRIMIDONE
     Indication: PETIT MAL EPILEPSY
  11. BARBEXACLONUM [Concomitant]
     Indication: PETIT MAL EPILEPSY
  12. PRIMIDONE. [Concomitant]
     Active Substance: PRIMIDONE
     Indication: GENERALISED TONIC-CLONIC SEIZURE

REACTIONS (8)
  - Vomiting [Unknown]
  - Ataxia [Unknown]
  - Anticonvulsant drug level above therapeutic [Unknown]
  - Nystagmus [Unknown]
  - Toxicity to various agents [Unknown]
  - Diplopia [Unknown]
  - Intention tremor [Unknown]
  - Cerebellar atrophy [Unknown]
